FAERS Safety Report 10869457 (Version 1)
Quarter: 2015Q1

REPORT INFORMATION
  Report Type: Spontaneous
  Country: US (occurrence: US)
  Receive Date: 20150226
  Receipt Date: 20150226
  Transmission Date: 20150721
  Serious: No
  Sender: FDA-Public Use
  Company Number: US-DRREDDYS-USA/USA/14/0042223

PATIENT
  Age: 50 Year
  Sex: Female

DRUGS (5)
  1. ALPRAZOLAM. [Concomitant]
     Active Substance: ALPRAZOLAM
     Indication: PRODUCT USED FOR UNKNOWN INDICATION
     Route: 065
  2. LORAZEPAM. [Concomitant]
     Active Substance: LORAZEPAM
     Indication: ELECTROENCEPHALOGRAM ABNORMAL
     Route: 065
  3. VALPROIC ACID. [Concomitant]
     Active Substance: VALPROIC ACID
     Indication: ELECTROENCEPHALOGRAM ABNORMAL
     Route: 065
  4. LEVETIRACETAM. [Suspect]
     Active Substance: LEVETIRACETAM
     Indication: ELECTROENCEPHALOGRAM ABNORMAL
     Route: 065
  5. AMITRIPTYLINE [Concomitant]
     Active Substance: AMITRIPTYLINE
     Indication: PRODUCT USED FOR UNKNOWN INDICATION
     Route: 065

REACTIONS (2)
  - Drug ineffective [Unknown]
  - Product quality issue [Unknown]
